FAERS Safety Report 7294352-5 (Version None)
Quarter: 2011Q1

REPORT INFORMATION
  Report Type: 
  Country: None (occurrence: None)
  Receive Date: 20110215
  Receipt Date: 20110214
  Transmission Date: 20110831
  Serious: Yes (Death, Other)
  Sender: FDA-Public Use
  Company Number: US-AMGEN-USASP2011007475

PATIENT
  Sex: Male

DRUGS (3)
  1. IMMUNOGLOBULINS [Concomitant]
     Indication: IDIOPATHIC THROMBOCYTOPENIC PURPURA
     Dosage: UNK A?G, UNK
  2. NPLATE [Suspect]
     Indication: IDIOPATHIC THROMBOCYTOPENIC PURPURA
     Dosage: 344 A?G, UNK
     Dates: start: 20100415, end: 20100708
  3. CORTICOSTEROIDS [Concomitant]
     Dosage: UNK
     Dates: start: 20100128

REACTIONS (4)
  - SUBDURAL HAEMATOMA [None]
  - DRUG INEFFECTIVE [None]
  - EMBOLISM ARTERIAL [None]
  - THROMBOSIS [None]
